FAERS Safety Report 8235669-7 (Version None)
Quarter: 2012Q1

REPORT INFORMATION
  Report Type: 
  Country: None (occurrence: None)
  Receive Date: 20120323
  Receipt Date: 20120312
  Transmission Date: 20120608
  Serious: Yes (Hospitalization, Other)
  Sender: FDA-Public Use
  Company Number: JPI-P-020335

PATIENT
  Age: 72 Year
  Sex: Female

DRUGS (1)
  1. XYREM [Suspect]
     Indication: NARCOLEPSY
     Dosage: 6 GM(3, 2 IN 1 D),ORAL, ORAL, 9 GM (4.5 GM,2 IN 1 D),ORAL
     Route: 048
     Dates: start: 20060505

REACTIONS (7)
  - ABDOMINAL OPERATION [None]
  - SOMNOLENCE [None]
  - URINARY INCONTINENCE [None]
  - ABNORMAL DREAMS [None]
  - LOSS OF CONSCIOUSNESS [None]
  - BACK PAIN [None]
  - SOMNAMBULISM [None]
